FAERS Safety Report 21021946 (Version 1)
Quarter: 2022Q2

REPORT INFORMATION
  Report Type: Spontaneous
  Country: US (occurrence: None)
  Receive Date: 20220628
  Receipt Date: 20220628
  Transmission Date: 20220721
  Serious: Yes (Other)
  Sender: FDA-Public Use
  Company Number: None

PATIENT
  Age: 89 Year
  Sex: Female
  Weight: 68.1 kg

DRUGS (10)
  1. PAXLOVID [Suspect]
     Active Substance: NIRMATRELVIR\RITONAVIR
     Indication: COVID-19
     Dosage: FREQUENCY : TWICE A DAY;?
     Route: 048
     Dates: start: 20220615, end: 20220620
  2. FOSAMAX [Concomitant]
     Active Substance: ALENDRONATE SODIUM
  3. CITALOPRAM [Concomitant]
     Active Substance: CITALOPRAM HYDROBROMIDE
  4. GLIPIZIDE [Concomitant]
     Active Substance: GLIPIZIDE
  5. LEVOTHYROXINE [Concomitant]
     Active Substance: LEVOTHYROXINE
  6. MAGNESIUM HYDROXIDE [Concomitant]
     Active Substance: MAGNESIUM HYDROXIDE
  7. LISINOPRIL [Concomitant]
     Active Substance: LISINOPRIL
  8. MELATONIN [Concomitant]
     Active Substance: MELATONIN
  9. MULTIVITAMIN WITH FLUORIDE [Concomitant]
     Active Substance: .ALPHA.-TOCOPHEROL\.ALPHA.-TOCOPHEROL ACETATE\.ALPHA.-TOCOPHEROL ACETATE, DL-\ASCORBIC ACID\CHOLECAL
  10. CALCIUM WITH VIT D 3 [Concomitant]

REACTIONS (3)
  - Symptom recurrence [None]
  - SARS-CoV-2 test positive [None]
  - Malaise [None]

NARRATIVE: CASE EVENT DATE: 20220625
